FAERS Safety Report 13291202 (Version 1)
Quarter: 2017Q1

REPORT INFORMATION
  Report Type: Spontaneous
  Country: US (occurrence: US)
  Receive Date: 20170302
  Receipt Date: 20170302
  Transmission Date: 20170428
  Serious: Yes (Disabling)
  Sender: FDA-Public Use
  Company Number: None

PATIENT
  Age: 45 Year
  Sex: Female
  Weight: 72.9 kg

DRUGS (6)
  1. FLUOROMETHALONE [Concomitant]
  2. ESOMEPRAZOLE MAGNESIUM CAPSULE [Suspect]
     Active Substance: ESOMEPRAZOLE MAGNESIUM
     Indication: GASTROOESOPHAGEAL REFLUX DISEASE
     Dosage: ?          QUANTITY:1 CAPSULE(S);?
     Route: 048
     Dates: start: 20170115
  3. TIMOLOL. [Concomitant]
     Active Substance: TIMOLOL
  4. XALATAN [Concomitant]
     Active Substance: LATANOPROST
  5. MAGNESIUM [Concomitant]
     Active Substance: MAGNESIUM
  6. VITAMIN D [Concomitant]
     Active Substance: CHOLECALCIFEROL

REACTIONS (4)
  - Product substitution issue [None]
  - Nausea [None]
  - Gastrooesophageal reflux disease [None]
  - Decreased appetite [None]

NARRATIVE: CASE EVENT DATE: 20170115
